FAERS Safety Report 8544957-6 (Version None)
Quarter: 2012Q3

REPORT INFORMATION
  Report Type: 
  Country: None (occurrence: None)
  Receive Date: 20120727
  Receipt Date: 20120719
  Transmission Date: 20120928
  Serious: Yes (Hospitalization)
  Sender: FDA-Public Use
  Company Number: CA-JNJFOC-20120711369

PATIENT
  Sex: Female
  Weight: 71.8 kg

DRUGS (1)
  1. REMICADE [Suspect]
     Indication: CROHN'S DISEASE
     Route: 042
     Dates: start: 20090303

REACTIONS (5)
  - CROHN'S DISEASE [None]
  - POST PROCEDURAL HAEMATOMA [None]
  - ANAEMIA [None]
  - VAGINAL CELLULITIS [None]
  - HYSTERECTOMY [None]
